FAERS Safety Report 8372189-3 (Version None)
Quarter: 2012Q2

REPORT INFORMATION
  Report Type: 
  Country: None (occurrence: None)
  Receive Date: 20120521
  Receipt Date: 20120509
  Transmission Date: 20120825
  Serious: Yes (Hospitalization)
  Sender: FDA-Public Use
  Company Number: US-BIOGENIDEC-2012BI008576

PATIENT
  Age: 52 Year
  Sex: Female

DRUGS (5)
  1. AVONEX [Suspect]
     Route: 030
     Dates: start: 20060916
  2. AVONEX [Suspect]
     Route: 030
     Dates: start: 20120401
  3. AVONEX [Suspect]
     Route: 030
     Dates: start: 20051013
  4. AVONEX [Suspect]
     Indication: MULTIPLE SCLEROSIS
     Route: 030
  5. AVONEX [Suspect]
     Route: 030
     Dates: start: 20030401

REACTIONS (1)
  - KNEE ARTHROPLASTY [None]
